FAERS Safety Report 12838809 (Version 2)
Quarter: 2016Q4

REPORT INFORMATION
  Report Type: Spontaneous
  Country: US (occurrence: US)
  Receive Date: 20161012
  Receipt Date: 20161027
  Transmission Date: 20170207
  Serious: No
  Sender: FDA-Public Use
  Company Number: US-PFIZER INC-2016465405

PATIENT
  Age: 6 Year
  Sex: Male

DRUGS (1)
  1. GENOTROPIN [Suspect]
     Active Substance: SOMATROPIN
     Dosage: 1.4 MG, UNK 7 DAYS PER WEEK, (9 DAY)
     Route: 058
     Dates: start: 20160830

REACTIONS (4)
  - Incorrect dose administered [Unknown]
  - Depressed mood [Unknown]
  - Crying [Unknown]
  - Aggression [Unknown]

NARRATIVE: CASE EVENT DATE: 20160830
